FAERS Safety Report 8537673-8 (Version None)
Quarter: 2012Q3

REPORT INFORMATION
  Report Type: 
  Country: None (occurrence: None)
  Receive Date: 20120725
  Receipt Date: 20120718
  Transmission Date: 20120928
  Serious: No
  Sender: FDA-Public Use
  Company Number: US-B.I. PHARMACEUTICALS,INC./RIDGEFIELD-2012-BP-16060BP

PATIENT
  Age: 80 Year
  Sex: Female

DRUGS (1)
  1. TRADJENTA [Suspect]
     Indication: DIABETES MELLITUS MANAGEMENT
     Dosage: 5 MG
     Route: 048
     Dates: start: 20120529, end: 20120718

REACTIONS (4)
  - ARTHRITIS [None]
  - HYPERGLYCAEMIA [None]
  - ASTHENIA [None]
  - ARTHRALGIA [None]
